FAERS Safety Report 4766155-4 (Version None)
Quarter: 2005Q3

REPORT INFORMATION
  Report Type: 
  Country: None (occurrence: None)
  Receive Date: 20050909
  Receipt Date: 20050829
  Transmission Date: 20060218
  Serious: Yes (Hospitalization)
  Sender: FDA-Public Use
  Company Number: 27347

PATIENT
  Age: 75 Year
  Sex: Female

DRUGS (3)
  1. FLECAINIDE ACETATE [Suspect]
     Dosage: 100 MG, ORAL
     Route: 048
     Dates: start: 20040215
  2. SULFASALAZINE [Suspect]
     Dosage: ORAL
     Route: 048
     Dates: end: 20050228
  3. CELECTOL [Suspect]
     Dosage: 200 MG, ORAL
     Route: 048
     Dates: start: 20020615

REACTIONS (2)
  - PNEUMONITIS [None]
  - WHITE BLOOD CELL COUNT INCREASED [None]
